FAERS Safety Report 25346793 (Version 1)
Quarter: 2025Q2

REPORT INFORMATION
  Report Type: Spontaneous
  Country: ES (occurrence: ES)
  Receive Date: 20250522
  Receipt Date: 20250522
  Transmission Date: 20250717
  Serious: Yes (Other)
  Sender: MYLAN
  Company Number: None

PATIENT
  Age: 74 Year
  Sex: Female

DRUGS (4)
  1. EPINEPHRINE [Suspect]
     Active Substance: EPINEPHRINE
     Indication: Bronchospasm
     Dates: start: 20250412, end: 20250412
  2. EPINEPHRINE [Suspect]
     Active Substance: EPINEPHRINE
     Route: 065
     Dates: start: 20250412, end: 20250412
  3. EPINEPHRINE [Suspect]
     Active Substance: EPINEPHRINE
     Route: 065
     Dates: start: 20250412, end: 20250412
  4. EPINEPHRINE [Suspect]
     Active Substance: EPINEPHRINE
     Dates: start: 20250412, end: 20250412

REACTIONS (3)
  - Electrocardiogram ST segment depression [Recovered/Resolved]
  - Medication error [Recovered/Resolved]
  - Palpitations [Recovered/Resolved]

NARRATIVE: CASE EVENT DATE: 20250412
